FAERS Safety Report 5083622-7 (Version None)
Quarter: 2006Q3

REPORT INFORMATION
  Report Type: 
  Country: None (occurrence: None)
  Receive Date: 20060818
  Receipt Date: 20060808
  Transmission Date: 20061208
  Serious: Yes (Hospitalization)
  Sender: FDA-Public Use
  Company Number: US-JNJFOC-20060801201

PATIENT
  Sex: Female
  Weight: 64.41 kg

DRUGS (7)
  1. ULTRAM [Suspect]
     Indication: ARTHRITIS
  2. ULTRAM [Suspect]
     Indication: FIBROMYALGIA
  3. ULTRAM [Suspect]
     Indication: PAIN
  4. ULTRAM ER [Suspect]
     Indication: BACK PAIN
     Route: 048
  5. SYNTHROID [Concomitant]
     Indication: THYROID DISORDER
  6. LANOXIN [Concomitant]
     Indication: CARDIAC DISORDER
  7. ARIMIDEX [Concomitant]
     Indication: PROPHYLACTIC CHEMOTHERAPY

REACTIONS (7)
  - ANXIETY [None]
  - DELUSION [None]
  - HALLUCINATION, AUDITORY [None]
  - HALLUCINATION, VISUAL [None]
  - INSOMNIA [None]
  - THERAPEUTIC RESPONSE DECREASED [None]
  - URINARY TRACT INFECTION [None]
